FAERS Safety Report 7288725-4 (Version None)
Quarter: 2011Q1

REPORT INFORMATION
  Report Type: 
  Country: None (occurrence: None)
  Receive Date: 20110211
  Receipt Date: 20110207
  Transmission Date: 20110831
  Serious: Yes (Death, Life-Threatening)
  Sender: FDA-Public Use
  Company Number: PHHY2010JP88136

PATIENT
  Age: 85 Year
  Sex: Male

DRUGS (14)
  1. ITOROL [Concomitant]
     Dosage: 40 MG DAILY
     Route: 048
     Dates: start: 20101108, end: 20101222
  2. FUROSEMIDE [Concomitant]
     Dosage: 60 MG DAILY (40 MG-20 MG-0 MG)
  3. SIGMART [Concomitant]
     Dosage: 20 MG DAILY
  4. LANIRAPID [Concomitant]
     Dosage: 0.05 MG DAILY
     Route: 048
     Dates: start: 20101108, end: 20101222
  5. KREMEZIN [Concomitant]
     Dosage: 6 CAPSULES DAILY IN 3 DIVIDED DOSES
  6. TANATRIL [Suspect]
     Dosage: 5 MG DAILY
     Route: 048
     Dates: start: 20101108, end: 20101122
  7. RENIVEZE [Concomitant]
     Dosage: 5 MG DAILY
  8. EXFORGE [Suspect]
     Dosage: ONE DOSAGE FORM DAILY
     Dates: start: 20101123, end: 20101216
  9. ARTIST [Concomitant]
     Dosage: 2.5 MG DAILY
  10. LASIX [Concomitant]
     Dosage: 20 MG DAILY
     Route: 048
     Dates: start: 20101108, end: 20101222
  11. NICORANDIL [Concomitant]
     Dosage: 15 MG DAILY3T DAILY
  12. NORVASC [Concomitant]
     Dosage: 2.5 MG DAILY
  13. NITRODERM [Concomitant]
     Dosage: ONE SHEET
  14. AMLODIPINE [Concomitant]
     Dosage: 2.5 MG DAILY
     Dates: start: 20101108, end: 20101122

REACTIONS (7)
  - BLOOD CREATINE INCREASED [None]
  - VENTRICULAR FIBRILLATION [None]
  - ANGINA PECTORIS [None]
  - RENAL FAILURE CHRONIC [None]
  - CHEST PAIN [None]
  - EOSINOPHIL COUNT INCREASED [None]
  - BLOOD UREA INCREASED [None]
